FAERS Safety Report 13438856 (Version 1)
Quarter: 2017Q2

REPORT INFORMATION
  Report Type: Spontaneous
  Country: US (occurrence: US)
  Receive Date: 20170413
  Receipt Date: 20170413
  Transmission Date: 20170830
  Serious: Yes (Hospitalization, Other)
  Sender: FDA-Public Use
  Company Number: US-ROCHE-327774

PATIENT
  Age: 18 Year
  Sex: Male
  Weight: 24 kg

DRUGS (1)
  1. ROCEPHIN [Suspect]
     Active Substance: CEFTRIAXONE SODIUM
     Indication: EYE INFECTION
     Route: 042
     Dates: start: 20010914, end: 20010922

REACTIONS (5)
  - Chromaturia [Unknown]
  - Vomiting [Recovered/Resolved]
  - Fatigue [Unknown]
  - Jaundice [Unknown]
  - Haemolytic anaemia [Recovered/Resolved]

NARRATIVE: CASE EVENT DATE: 20010920
